FAERS Safety Report 8448009-5 (Version None)
Quarter: 2012Q2

REPORT INFORMATION
  Report Type: 
  Country: None (occurrence: None)
  Receive Date: 20120619
  Receipt Date: 20120613
  Transmission Date: 20120825
  Serious: Yes (Other)
  Sender: FDA-Public Use
  Company Number: US-AMGEN-USASP2011040009

PATIENT
  Age: 63 Year
  Sex: Male
  Weight: 88.435 kg

DRUGS (9)
  1. ENBREL [Suspect]
     Indication: PSORIASIS
     Dosage: 50 MG, QWK
     Dates: start: 20090730
  2. METFORMIN HCL [Concomitant]
     Indication: METABOLIC SYNDROME
     Dosage: 500 MG, QD
     Route: 048
     Dates: start: 20100510
  3. GEMFIBROZIL [Concomitant]
  4. ONGLYZA [Concomitant]
  5. LOTENSIN HCT [Concomitant]
     Indication: HYPERTENSION
     Dosage: UNK UNK, BID
     Route: 048
     Dates: start: 20051116
  6. ENBREL [Suspect]
     Indication: PSORIATIC ARTHROPATHY
  7. BENAZEPRIL/HCTZ [Concomitant]
  8. PREDNISONE [Concomitant]
  9. LIVALO [Concomitant]

REACTIONS (1)
  - SQUAMOUS CELL CARCINOMA [None]
